FAERS Safety Report 7313357-9 (Version None)
Quarter: 2011Q1

REPORT INFORMATION
  Report Type: 
  Country: None (occurrence: None)
  Receive Date: 20110225
  Receipt Date: 20110215
  Transmission Date: 20110831
  Serious: Yes (Hospitalization)
  Sender: FDA-Public Use
  Company Number: DE-AMGEN-DEUCT2011009578

PATIENT
  Age: 76 Year
  Sex: Female

DRUGS (5)
  1. HYDROMORPHONE [Concomitant]
     Dosage: 8 MG, BID SLOW RELASE FORMULATION
  2. GLUCOCORTICOIDS [Concomitant]
     Dosage: 5 MG, UNK
  3. ENBREL [Suspect]
     Indication: RHEUMATOID ARTHRITIS
     Dosage: 25 MG, EVERY 4 DAYS
     Dates: start: 20070907
  4. DIOVANE [Concomitant]
     Indication: HYPERTENSION
     Dosage: UNK
  5. ENBREL [Suspect]
     Indication: PRODUCT USED FOR UNKNOWN INDICATION

REACTIONS (2)
  - PLEURISY [None]
  - PNEUMONIA [None]
